FAERS Safety Report 4588964-7 (Version None)
Quarter: 2005Q1

REPORT INFORMATION
  Report Type: 
  Country: None (occurrence: None)
  Receive Date: 20050216
  Receipt Date: 20050131
  Transmission Date: 20050727
  Serious: No
  Sender: FDA-Public Use
  Company Number: USA050289724

PATIENT

DRUGS (1)
  1. STRATTERA [Suspect]

REACTIONS (2)
  - HEPATIC ENZYME ABNORMAL [None]
  - SERUM FERRITIN INCREASED [None]
